FAERS Safety Report 16787767 (Version 1)
Quarter: 2019Q3

REPORT INFORMATION
  Report Type: Spontaneous
  Country: GB (occurrence: GB)
  Receive Date: 20190909
  Receipt Date: 20190909
  Transmission Date: 20191005
  Serious: Yes (Hospitalization, Other)
  Sender: FDA-Public Use
  Company Number: GB-MYLANLABS-2019M1083473

PATIENT
  Age: 69 Year
  Sex: Female

DRUGS (6)
  1. CYCLIZINE [Concomitant]
     Active Substance: CYCLIZINE
  2. WARFARIN [Concomitant]
     Active Substance: WARFARIN
     Indication: ATRIAL FIBRILLATION
     Dosage: UNK
  3. MORPHINE SULFATE. [Concomitant]
     Active Substance: MORPHINE SULFATE
     Dosage: UNK
  4. PARACETAMOL [Concomitant]
     Active Substance: ACETAMINOPHEN
     Dosage: UNK
  5. CIPROFLOXACIN. [Suspect]
     Active Substance: CIPROFLOXACIN
     Indication: ARTHRITIS INFECTIVE
     Dosage: 1500 MILLIGRAM, QD
     Route: 048
     Dates: start: 20190307, end: 20190313
  6. CODEINE [Concomitant]
     Active Substance: CODEINE
     Dosage: UNK

REACTIONS (3)
  - Dyskinesia [Unknown]
  - Tremor [Recovering/Resolving]
  - Muscle tightness [Unknown]

NARRATIVE: CASE EVENT DATE: 20190311
